FAERS Safety Report 4695494-0 (Version None)
Quarter: 2005Q2

REPORT INFORMATION
  Report Type: 
  Country: None (occurrence: None)
  Receive Date: 20050621
  Receipt Date: 20050427
  Transmission Date: 20051028
  Serious: Yes (Hospitalization)
  Sender: FDA-Public Use
  Company Number: 200511339JP

PATIENT
  Age: 35 Year
  Sex: Female

DRUGS (8)
  1. KETEK [Suspect]
     Indication: ACUTE SINUSITIS
     Route: 048
     Dates: start: 20050420, end: 20050424
  2. KETEK [Suspect]
     Indication: BRONCHITIS ACUTE
     Route: 048
     Dates: start: 20050420, end: 20050424
  3. KETEK [Suspect]
     Indication: LARYNGOPHARYNGITIS
     Route: 048
     Dates: start: 20050420, end: 20050424
  4. PREDNISOLONE [Concomitant]
     Indication: LARYNGOPHARYNGITIS
     Route: 048
     Dates: start: 20050420, end: 20050422
  5. CODEINE PHOSPHATE [Concomitant]
     Indication: BRONCHITIS ACUTE
     Route: 048
     Dates: start: 20050420, end: 20050424
  6. MUCODYNE [Concomitant]
     Indication: ACUTE SINUSITIS
     Route: 048
     Dates: start: 20050420, end: 20050424
  7. MUCODYNE [Concomitant]
     Indication: BRONCHITIS ACUTE
     Route: 048
     Dates: start: 20050420, end: 20050424
  8. MUCODYNE [Concomitant]
     Indication: LARYNGOPHARYNGITIS
     Route: 048
     Dates: start: 20050420, end: 20050424

REACTIONS (6)
  - ABNORMAL SENSATION IN EYE [None]
  - BLOOD PRESSURE INCREASED [None]
  - DIPLOPIA [None]
  - DIZZINESS [None]
  - FATIGUE [None]
  - NAUSEA [None]
